FAERS Safety Report 20357227 (Version 3)
Quarter: 2022Q1

REPORT INFORMATION
  Report Type: Other
  Country: JP (occurrence: JP)
  Receive Date: 20220120
  Receipt Date: 20220212
  Transmission Date: 20220423
  Serious: Yes (Death)
  Sender: FDA-Public Use
  Company Number: JP-CHUGAI-2022000529

PATIENT
  Age: 35 Year
  Sex: Male
  Weight: 94 kg

DRUGS (4)
  1. AVASTIN [Suspect]
     Active Substance: BEVACIZUMAB
     Indication: Glioblastoma multiforme
     Route: 041
  2. AVASTIN [Suspect]
     Active Substance: BEVACIZUMAB
     Dosage: 10 MILLIGRAM/KILOGRAM, ONCE/2WEEKS
     Route: 041
  3. TEMOZOLOMIDE [Concomitant]
     Active Substance: TEMOZOLOMIDE
     Dosage: 75 MILLIGRAM/SQ. METER
     Route: 065
  4. TEMOZOLOMIDE [Concomitant]
     Active Substance: TEMOZOLOMIDE
     Dosage: 200 MILLIGRAM/SQ. METER, ONCE/4WEEKS
     Route: 065

REACTIONS (2)
  - Glioma [Fatal]
  - Off label use [Unknown]
